FAERS Safety Report 6829447-0 (Version None)
Quarter: 2010Q3

REPORT INFORMATION
  Report Type: 
  Country: None (occurrence: None)
  Receive Date: 20100709
  Receipt Date: 20070308
  Transmission Date: 20110219
  Serious: No
  Sender: FDA-Public Use
  Company Number: US-PFIZER INC-2007019437

PATIENT
  Sex: Female
  Weight: 74.84 kg

DRUGS (8)
  1. CHANTIX [Suspect]
     Indication: SMOKING CESSATION THERAPY
     Dates: start: 20070302
  2. ZOCOR [Concomitant]
     Indication: BLOOD CHOLESTEROL INCREASED
  3. MONTELUKAST SODIUM [Concomitant]
     Indication: ASTHMA
  4. EVISTA [Concomitant]
  5. ACETYLSALICYLIC ACID [Concomitant]
  6. TIOTROPIUM BROMIDE [Concomitant]
  7. ALBUTEROL [Concomitant]
  8. ANTINEOPLASTIC AGENTS [Concomitant]
     Indication: BREAST CANCER

REACTIONS (1)
  - NAUSEA [None]
